FAERS Safety Report 22233504 (Version 1)
Quarter: 2023Q2

REPORT INFORMATION
  Report Type: Spontaneous
  Country: US (occurrence: None)
  Receive Date: 20230420
  Receipt Date: 20230420
  Transmission Date: 20230721
  Serious: No
  Sender: FDA-Public Use
  Company Number: US-ROCHE-3100721

PATIENT
  Sex: Male

DRUGS (1)
  1. ESBRIET [Suspect]
     Active Substance: PIRFENIDONE
     Indication: Pulmonary fibrosis
     Dosage: THREE TIMES A DAY ONGOING: UNKNOWN
     Route: 048
     Dates: start: 202204

REACTIONS (3)
  - Gastric disorder [Unknown]
  - Diarrhoea [Unknown]
  - Dyspnoea [Unknown]
